FAERS Safety Report 9563841 (Version 1)
Quarter: 2013Q3

REPORT INFORMATION
  Report Type: Spontaneous
  Country: US (occurrence: None)
  Receive Date: 20130926
  Receipt Date: 20130926
  Transmission Date: 20140515
  Serious: Yes (Disabling)
  Sender: FDA-Public Use
  Company Number: None

PATIENT
  Age: 44 Year
  Sex: Female
  Weight: 87.09 kg

DRUGS (1)
  1. MELOXICAM [Suspect]
     Indication: ARTHRITIS
     Dosage: 1 PILL; TWICE DAILY
     Route: 048
     Dates: start: 20130524, end: 20130531

REACTIONS (8)
  - Pain in extremity [None]
  - Paraesthesia [None]
  - Visual impairment [None]
  - Sensory loss [None]
  - Fall [None]
  - Muscle atrophy [None]
  - Weight bearing difficulty [None]
  - Gait disturbance [None]
